FAERS Safety Report 26204759 (Version 1)
Quarter: 2025Q4

REPORT INFORMATION
  Report Type: Spontaneous
  Country: EU (occurrence: EU)
  Receive Date: 20251227
  Receipt Date: 20251227
  Transmission Date: 20260117
  Serious: Yes (Hospitalization)
  Sender: AUROBINDO
  Company Number: EU-BFARM-25008776

PATIENT
  Sex: Female

DRUGS (1)
  1. AMOXICILLIN TRIHYDRATE [Suspect]
     Active Substance: AMOXICILLIN
     Indication: Abscess
     Dosage: 500 MILLIGRAM, 3 TIMES A DAY (3X500MG)
     Route: 065

REACTIONS (6)
  - Pharyngeal swelling [Recovered/Resolved]
  - Hypoaesthesia oral [Recovered/Resolved]
  - Constipation [Recovered/Resolved]
  - Rash macular [Recovered/Resolved]
  - Rash papular [Recovered/Resolved]
  - Skin burning sensation [Recovered/Resolved]
